FAERS Safety Report 24059392 (Version 1)
Quarter: 2024Q3

REPORT INFORMATION
  Report Type: Spontaneous
  Country: SI (occurrence: SI)
  Receive Date: 20240708
  Receipt Date: 20240708
  Transmission Date: 20241016
  Serious: Yes (Hospitalization)
  Sender: MYLAN
  Company Number: SI-MYLANLABS-2024M1061280

PATIENT
  Age: 68 Year
  Sex: Female

DRUGS (1)
  1. LYRICA [Suspect]
     Active Substance: PREGABALIN
     Indication: Product used for unknown indication
     Dosage: UNK
     Route: 065
     Dates: start: 2024

REACTIONS (7)
  - Throat irritation [Unknown]
  - Palpitations [Not Recovered/Not Resolved]
  - Oropharyngeal pain [Unknown]
  - Hypertension [Recovered/Resolved]
  - Nausea [Unknown]
  - Dyspepsia [Unknown]
  - Electrocardiogram abnormal [Unknown]
